FAERS Safety Report 18659775 (Version 1)
Quarter: 2020Q4

REPORT INFORMATION
  Report Type: Not Available
  Country: None (occurrence: None)
  Receive Date: 20201223
  Receipt Date: 20201223
  Transmission Date: 20210114
  Serious: No
  Sender: FDA-Public Use
  Company Number: US-AKORN PHARMACEUTICALS-2020AKN01113

PATIENT
  Age: 19 Year
  Sex: Male

DRUGS (1)
  1. MYORISAN [Suspect]
     Active Substance: ISOTRETINOIN

REACTIONS (5)
  - Vision blurred [None]
  - Dry eye [Unknown]
  - Blepharitis [Unknown]
  - Ocular rosacea [Unknown]
  - Hypermetropia [Unknown]

NARRATIVE: CASE EVENT DATE: 20200801
